FAERS Safety Report 6642771-X (Version None)
Quarter: 2010Q1

REPORT INFORMATION
  Report Type: 
  Country: None (occurrence: None)
  Receive Date: 20100316
  Receipt Date: 20100309
  Transmission Date: 20100710
  Serious: Yes (Disabling)
  Sender: FDA-Public Use
  Company Number: DE-1180053

PATIENT
  Age: 73 Year
  Sex: Female

DRUGS (1)
  1. TRAVATAN [Suspect]
     Indication: GLAUCOMA
     Dosage: QPM, OPHTHALMIC
     Route: 047
     Dates: start: 20050101, end: 20091201

REACTIONS (1)
  - AGEUSIA [None]
